FAERS Safety Report 17745666 (Version 1)
Quarter: 2020Q2

REPORT INFORMATION
  Report Type: Spontaneous
  Country: US (occurrence: US)
  Receive Date: 20200505
  Receipt Date: 20200505
  Transmission Date: 20200714
  Serious: Yes (Hospitalization)
  Sender: FDA-Public Use
  Company Number: None

PATIENT
  Sex: Male
  Weight: 84.5 kg

DRUGS (3)
  1. VELCADE [Suspect]
     Active Substance: BORTEZOMIB
     Dates: end: 20170922
  2. DEXAMETHASONE (34521) [Suspect]
     Active Substance: DEXAMETHASONE
     Dates: end: 20170924
  3. LENALIDOMIDE [Suspect]
     Active Substance: LENALIDOMIDE
     Dates: end: 20170924

REACTIONS (7)
  - Lung infiltration [None]
  - Lung consolidation [None]
  - Respiratory failure [None]
  - Treatment noncompliance [None]
  - Pneumonia [None]
  - Neutrophil count increased [None]
  - White blood cell count abnormal [None]

NARRATIVE: CASE EVENT DATE: 20170926
